FAERS Safety Report 9327555 (Version 2)
Quarter: 2013Q3

REPORT INFORMATION
  Report Type: Spontaneous
  Country: US (occurrence: US)
  Receive Date: 20130604
  Receipt Date: 20130701
  Transmission Date: 20140515
  Serious: No
  Sender: FDA-Public Use
  Company Number: US-PFIZER INC-2013166355

PATIENT
  Age: 72 Year
  Sex: Female
  Weight: 72.11 kg

DRUGS (4)
  1. ADVIL [Suspect]
     Indication: HEADACHE
     Dosage: UNK
  2. WELCHOL [Concomitant]
     Indication: BLOOD CHOLESTEROL INCREASED
     Dosage: UNK
  3. TRICOR [Concomitant]
     Indication: BLOOD TRIGLYCERIDES INCREASED
     Dosage: UNK
  4. NORTRIPTYLINE [Concomitant]
     Dosage: UNK

REACTIONS (2)
  - Extra dose administered [Unknown]
  - Abdominal discomfort [Unknown]
